FAERS Safety Report 11902028 (Version 1)
Quarter: 2016Q1

REPORT INFORMATION
  Report Type: Report from Study
  Country: US (occurrence: US)
  Receive Date: 20160108
  Receipt Date: 20160108
  Transmission Date: 20160526
  Serious: No
  Sender: FDA-Public Use
  Company Number: US-ABBVIE-15P-163-1490405-00

PATIENT
  Age: 60 Year
  Sex: Female

DRUGS (6)
  1. RESTASIS [Concomitant]
     Active Substance: CYCLOSPORINE
     Indication: PRODUCT USED FOR UNKNOWN INDICATION
     Dates: start: 20150415
  2. MVI [Concomitant]
     Active Substance: VITAMINS
     Indication: PRODUCT USED FOR UNKNOWN INDICATION
     Route: 048
  3. VIEKIRA PAK [Suspect]
     Active Substance: DASABUVIR\OMBITASVIR\PARITAPREVIR\RITONAVIR
     Indication: HEPATITIS C
     Dosage: 1 PAK DAILY
     Route: 048
     Dates: start: 20150911
  4. MELOXICAM. [Concomitant]
     Active Substance: MELOXICAM
     Indication: PRODUCT USED FOR UNKNOWN INDICATION
     Route: 048
     Dates: start: 20150415
  5. ATENOLOL. [Concomitant]
     Active Substance: ATENOLOL
     Indication: HYPERTENSION
     Route: 048
     Dates: start: 20150904
  6. RIBAVIRIN. [Concomitant]
     Active Substance: RIBAVIRIN
     Indication: HEPATITIS C
     Dosage: 600MG AM AND 400MG PM
     Route: 048
     Dates: start: 20150911

REACTIONS (6)
  - Rash [Unknown]
  - Nausea [Unknown]
  - Fatigue [Unknown]
  - Diarrhoea [Unknown]
  - Eye infection [Unknown]
  - Vomiting [Unknown]

NARRATIVE: CASE EVENT DATE: 20150929
